FAERS Safety Report 6085333-8 (Version None)
Quarter: 2009Q1

REPORT INFORMATION
  Report Type: 
  Country: None (occurrence: None)
  Receive Date: 20090220
  Receipt Date: 20090209
  Transmission Date: 20090719
  Serious: Yes (Life-Threatening, Other)
  Sender: FDA-Public Use
  Company Number: US-PFIZER INC-2009169313

PATIENT
  Sex: Male

DRUGS (1)
  1. PENICILLIN G PROCAINE [Suspect]
     Indication: PROPHYLAXIS
     Dosage: 5 MILLIONIU, SINGLE
     Route: 064

REACTIONS (2)
  - DRUG EXPOSURE DURING PREGNANCY [None]
  - ENCEPHALOPATHY NEONATAL [None]
